FAERS Safety Report 5192055-4 (Version None)
Quarter: 2006Q4

REPORT INFORMATION
  Report Type: 
  Country: None (occurrence: None)
  Receive Date: 20061220
  Receipt Date: 20061207
  Transmission Date: 20070319
  Serious: Yes (Hospitalization)
  Sender: FDA-Public Use
  Company Number: 2006151452

PATIENT
  Age: 62 Year
  Sex: Male

DRUGS (1)
  1. SU-011,248 (SUNITINIB MALATE) [Suspect]
     Indication: RENAL CELL CARCINOMA STAGE UNSPECIFIED
     Dosage: 50 MG (50 MG, QD), ORAL
     Route: 048
     Dates: start: 20061012, end: 20061205

REACTIONS (6)
  - AMMONIA INCREASED [None]
  - BLOOD CREATININE INCREASED [None]
  - CONVULSION [None]
  - HYPOALBUMINAEMIA [None]
  - RESPIRATORY FAILURE [None]
  - SEPSIS [None]
